FAERS Safety Report 7655641-5 (Version None)
Quarter: 2011Q3

REPORT INFORMATION
  Report Type: 
  Country: None (occurrence: None)
  Receive Date: 20110801
  Receipt Date: 20110715
  Transmission Date: 20111222
  Serious: Yes (Hospitalization, Other)
  Sender: FDA-Public Use
  Company Number: AMAG201100147

PATIENT
  Age: 64 Year
  Sex: Male
  Weight: 92.1 kg

DRUGS (15)
  1. TYLENOL (PARACETAMOL) TABLET [Concomitant]
  2. CALCIUM ACETATE (CALCIUM ACETATE) [Concomitant]
  3. DIGOXIN [Concomitant]
  4. EPOETIN (EPOETIN ALFA) INJECTION [Concomitant]
  5. FERAHEME [Suspect]
     Indication: IRON DEFICIENCY ANAEMIA
     Dosage: 510 MG, SINGLE, INTRAVENOUS
     Route: 042
     Dates: start: 20110525, end: 20110525
  6. ASPIRIN [Concomitant]
  7. COREG [Concomitant]
  8. SIMVASTATIN [Concomitant]
  9. PLAVIX [Concomitant]
  10. OMEPRAZOLE [Concomitant]
  11. CALCITRIOL [Concomitant]
  12. FOLIC ACID [Concomitant]
  13. FERROUS SULFATE TAB [Concomitant]
  14. INSULIN ASPART (INSULIN ASPART) [Concomitant]
  15. NEPHRO-VITE (ASCORBIC ACID, CYANOCOBALAMIN, FOLIC ACID, IRON, NICOTINA [Concomitant]

REACTIONS (31)
  - RENAL FAILURE ACUTE [None]
  - ATRIAL FIBRILLATION [None]
  - ATRIAL SEPTAL DEFECT [None]
  - CONDITION AGGRAVATED [None]
  - TROPONIN INCREASED [None]
  - HYPERGLYCAEMIA [None]
  - DIARRHOEA [None]
  - PLATELET COUNT DECREASED [None]
  - SERRATIA TEST POSITIVE [None]
  - ASTHENIA [None]
  - SKIN ULCER [None]
  - HAEMODIALYSIS [None]
  - MITRAL VALVE INCOMPETENCE [None]
  - BASE EXCESS DECREASED [None]
  - OXYGEN SATURATION DECREASED [None]
  - NAUSEA [None]
  - VOMITING [None]
  - LABORATORY TEST INTERFERENCE [None]
  - CORONARY ARTERY DISEASE [None]
  - URINARY TRACT OBSTRUCTION [None]
  - HYPOTENSION [None]
  - TRICUSPID VALVE INCOMPETENCE [None]
  - BLOOD CREATINE PHOSPHOKINASE MB INCREASED [None]
  - REFUSAL OF TREATMENT BY PATIENT [None]
  - UROSEPSIS [None]
  - PO2 DECREASED [None]
  - CARDIAC FAILURE CONGESTIVE [None]
  - PERICARDIAL EFFUSION [None]
  - AORTIC STENOSIS [None]
  - STAPHYLOCOCCUS TEST POSITIVE [None]
  - BLOOD PH DECREASED [None]
